FAERS Safety Report 14160563 (Version 1)
Quarter: 2017Q4

REPORT INFORMATION
  Report Type: Spontaneous
  Country: JP (occurrence: JP)
  Receive Date: 20171104
  Receipt Date: 20171104
  Transmission Date: 20180321
  Serious: Yes (Hospitalization, Other)
  Sender: FDA-Public Use
  Company Number: JP-SUN PHARMACEUTICAL INDUSTRIES LTD-2017RR-153866

PATIENT
  Age: 46 Year
  Sex: Female

DRUGS (6)
  1. CARVEDILOL. [Suspect]
     Active Substance: CARVEDILOL
     Indication: MELAS SYNDROME
     Dosage: 3.75 MG, UNK
     Route: 048
  2. FUROSEMIDE. [Suspect]
     Active Substance: FUROSEMIDE
     Indication: MELAS SYNDROME
     Dosage: 40 MG, UNK
     Route: 048
  3. EPLERENONE. [Suspect]
     Active Substance: EPLERENONE
     Indication: MELAS SYNDROME
     Dosage: 25 MG, UNK
     Route: 048
  4. TOLVAPTAN [Suspect]
     Active Substance: TOLVAPTAN
     Indication: MELAS SYNDROME
     Dosage: 3.75 MG, UNK
     Route: 048
  5. PIMOBENDAN [Suspect]
     Active Substance: PIMOBENDAN
     Indication: MELAS SYNDROME
     Dosage: 2.5 MG, UNK
     Route: 048
  6. PERINDOPRIL [Suspect]
     Active Substance: PERINDOPRIL
     Indication: MELAS SYNDROME
     Dosage: 25 MG, UNK
     Route: 048

REACTIONS (1)
  - Drug ineffective [Unknown]
